FAERS Safety Report 10723986 (Version 1)
Quarter: 2015Q1

REPORT INFORMATION
  Report Type: Spontaneous
  Country: US (occurrence: US)
  Receive Date: 20150120
  Receipt Date: 20150120
  Transmission Date: 20150721
  Serious: Yes (Other)
  Sender: FDA-Public Use
  Company Number: US-RB-072233-15

PATIENT
  Sex: Female

DRUGS (1)
  1. MUCINEX DM MAXIMUM STRENGTH [Suspect]
     Active Substance: DEXTROMETHORPHAN HYDROBROMIDE\GUAIFENESIN
     Indication: PRODUCT USED FOR UNKNOWN INDICATION
     Dosage: TOOK 6 TABLETS FROM THE CURRENT PACKAGE AND AN UNSPECIFIED NUMBER OF TABLETS FROM A PREVIOUS PACKAGE
     Route: 065

REACTIONS (3)
  - Expired product administered [Unknown]
  - Epistaxis [Unknown]
  - Diarrhoea [Unknown]
